FAERS Safety Report 21204763 (Version 2)
Quarter: 2022Q3

REPORT INFORMATION
  Report Type: Spontaneous
  Country: US (occurrence: US)
  Receive Date: 20220812
  Receipt Date: 20220824
  Transmission Date: 20221027
  Serious: No
  Sender: FDA-Public Use
  Company Number: US-TEVA-2022-US-2062243

PATIENT
  Age: 69 Year
  Sex: Male
  Weight: 120.66 kg

DRUGS (2)
  1. AUSTEDO [Suspect]
     Active Substance: DEUTETRABENAZINE
     Indication: Tardive dyskinesia
     Dosage: 12 MILLIGRAM DAILY;
     Dates: start: 20220723
  2. CYMBALTA [Concomitant]
     Active Substance: DULOXETINE HYDROCHLORIDE
     Indication: Depression

REACTIONS (5)
  - Tension [Unknown]
  - Dizziness [Unknown]
  - Dysstasia [Unknown]
  - Dyskinesia [Unknown]
  - Headache [Unknown]

NARRATIVE: CASE EVENT DATE: 20220701
